FAERS Safety Report 9378503 (Version 1)
Quarter: 2013Q3

REPORT INFORMATION
  Report Type: Spontaneous
  Country: US (occurrence: US)
  Receive Date: 20130702
  Receipt Date: 20130702
  Transmission Date: 20140515
  Serious: No
  Sender: FDA-Public Use
  Company Number: US-009507513-1306USA014712

PATIENT
  Age: 54 Year
  Sex: Male

DRUGS (1)
  1. VICTRELIS [Suspect]
     Indication: HEPATITIS C
     Dosage: UNK
     Dates: start: 201306

REACTIONS (4)
  - Pyrexia [Recovered/Resolved]
  - Cheilitis [Recovered/Resolved]
  - Pain [Recovering/Resolving]
  - Inappropriate schedule of drug administration [Unknown]
